FAERS Safety Report 6390135-9 (Version None)
Quarter: 2009Q4

REPORT INFORMATION
  Report Type: 
  Country: None (occurrence: None)
  Receive Date: 20091003
  Receipt Date: 20090921
  Transmission Date: 20100525
  Serious: Yes (Hospitalization, Disabling)
  Sender: FDA-Public Use
  Company Number: 2009-02723

PATIENT
  Age: 30 Year
  Sex: Male
  Weight: 113 kg

DRUGS (4)
  1. VELCADE [Suspect]
     Indication: MULTIPLE MYELOMA
  2. THALIDOMIDE [Suspect]
     Indication: MULTIPLE MYELOMA
     Dosage: 150 MG, UNK, UNK
  3. DEXAMETHASONE TAB [Suspect]
     Indication: MULTIPLE MYELOMA
  4. LEVETIRACETAM [Concomitant]

REACTIONS (12)
  - CONJUNCTIVAL OEDEMA [None]
  - DIPLOPIA [None]
  - ECCHYMOSIS [None]
  - EXOPHTHALMOS [None]
  - EYE PAIN [None]
  - EYE SWELLING [None]
  - HYPERAEMIA [None]
  - LACRIMATION INCREASED [None]
  - LAGOPHTHALMOS [None]
  - MUSCLE DISORDER [None]
  - OCULAR HYPERAEMIA [None]
  - PAPILLOEDEMA [None]
